FAERS Safety Report 24236676 (Version 1)
Quarter: 2024Q3

REPORT INFORMATION
  Report Type: Report from Study
  Country: US (occurrence: None)
  Receive Date: 20240822
  Receipt Date: 20240822
  Transmission Date: 20241017
  Serious: Yes (Other)
  Sender: ASTRAZENECA
  Company Number: 2023A186577

PATIENT
  Sex: Female

DRUGS (3)
  1. SYMBICORT [Suspect]
     Active Substance: BUDESONIDE\FORMOTEROL FUMARATE DIHYDRATE
     Dosage: 160 MICROGRAMS DAILY
     Route: 055
  2. SYMBICORT [Suspect]
     Active Substance: BUDESONIDE\FORMOTEROL FUMARATE DIHYDRATE
     Dosage: SOMETIMES TWICE DAILY IF NEEDED
     Route: 055
  3. BRILINTA [Concomitant]
     Active Substance: TICAGRELOR
     Indication: Stent placement
     Dates: start: 202307

REACTIONS (3)
  - Pulmonary thrombosis [Recovered/Resolved]
  - Coronary artery occlusion [Unknown]
  - Product use issue [Unknown]
